FAERS Safety Report 25847752 (Version 1)
Quarter: 2025Q3

REPORT INFORMATION
  Report Type: Spontaneous
  Country: JP (occurrence: JP)
  Receive Date: 20250925
  Receipt Date: 20250925
  Transmission Date: 20251020
  Serious: Yes (Death, Other)
  Sender: BRISTOL-MYERS SQUIBB COMPANY
  Company Number: JP-BRISTOL-MYERS SQUIBB COMPANY-2025-128975

PATIENT
  Age: 87 Year
  Sex: Male

DRUGS (1)
  1. REBLOZYL [Suspect]
     Active Substance: LUSPATERCEPT-AAMT
     Indication: Myelodysplastic syndrome
     Dosage: DOSE : 1MG/KG;     FREQ : ONCE IN 3 WEEKS
     Dates: end: 20250725

REACTIONS (3)
  - Thrombosis [Fatal]
  - Haemoglobin decreased [Unknown]
  - Bedridden [Unknown]

NARRATIVE: CASE EVENT DATE: 20250830
